FAERS Safety Report 6270262-7 (Version None)
Quarter: 2009Q3

REPORT INFORMATION
  Report Type: 
  Country: None (occurrence: None)
  Receive Date: 20090716
  Receipt Date: 20090707
  Transmission Date: 20100115
  Serious: Yes (Death)
  Sender: FDA-Public Use
  Company Number: FR-GENENTECH-286765

PATIENT
  Age: 49 Year
  Sex: Male

DRUGS (2)
  1. RITUXIMAB [Suspect]
     Indication: B-CELL LYMPHOMA RECURRENT
     Dosage: 375 MG/M2, UNK
     Route: 042
     Dates: start: 20070919, end: 20071011
  2. RITUXIMAB [Suspect]
     Dosage: 688 MG/ML, UNK
     Dates: start: 20071011, end: 20071011

REACTIONS (1)
  - BRONCHOPULMONARY ASPERGILLOSIS [None]
